FAERS Safety Report 9156803 (Version 1)
Quarter: 2013Q1

REPORT INFORMATION
  Report Type: Spontaneous
  Country: US (occurrence: US)
  Receive Date: 20130312
  Receipt Date: 20130312
  Transmission Date: 20140127
  Serious: Yes (Hospitalization)
  Sender: FDA-Public Use
  Company Number: US-BAYER-2013-028126

PATIENT
  Age: 22 Year
  Sex: Female

DRUGS (25)
  1. YASMIN [Suspect]
     Indication: MENORRHAGIA
  2. PROZAC [Concomitant]
  3. RISPERDAL [Concomitant]
     Dosage: 0.25 TWICE A DAY
  4. TYLENOL [Concomitant]
  5. CYMBALTA [Concomitant]
     Dosage: 60 MG, DAILY
  6. ALBUTEROL [Concomitant]
  7. ADVAIR [Concomitant]
  8. ALEVE [Concomitant]
  9. NAPROXEN [Concomitant]
     Dosage: 500 MG, UNK
  10. AZITHROMYCIN [Concomitant]
     Dosage: 250 MG, UNK
  11. SERTRALINE [Concomitant]
     Dosage: 100 MG, UNK
  12. MECLIZINE [Concomitant]
     Dosage: 25 MG, UNK
  13. IBUPROFEN [Concomitant]
  14. FLEXERIL [Concomitant]
     Dosage: 10 MG, UNK
  15. TRAMADOL [Concomitant]
     Dosage: 50 MG, UNK
  16. CEPHALEXIN [Concomitant]
  17. TORADOL [Concomitant]
     Dosage: 60 MG, UNK
  18. MUCINEX [Concomitant]
     Indication: COUGH
  19. MUCINEX [Concomitant]
     Indication: CHEST DISCOMFORT
  20. MOTRIN [Concomitant]
  21. LEVAQUIN [Concomitant]
  22. DILAUDID [Concomitant]
     Indication: PAIN
  23. KLONOPIN [Concomitant]
  24. FLOVENT [Concomitant]
  25. PERCOCET [Concomitant]
     Indication: PAIN

REACTIONS (1)
  - Pulmonary embolism [Recovered/Resolved]
